FAERS Safety Report 5026213-6 (Version None)
Quarter: 2006Q2

REPORT INFORMATION
  Report Type: 
  Country: None (occurrence: None)
  Receive Date: 20060608
  Receipt Date: 20060601
  Transmission Date: 20061013
  Serious: Yes (Other)
  Sender: FDA-Public Use
  Company Number: 2006015805

PATIENT
  Age: 44 Year
  Sex: Female

DRUGS (1)
  1. RELPAX [Suspect]
     Indication: MIGRAINE
     Dosage: UNKNOWN, ORAL
     Route: 048
     Dates: end: 20050101

REACTIONS (3)
  - BLEPHAROSPASM [None]
  - COAGULATION FACTOR VIII LEVEL INCREASED [None]
  - RETINAL VASCULAR DISORDER [None]
